FAERS Safety Report 22032699 (Version 1)
Quarter: 2023Q1

REPORT INFORMATION
  Report Type: Report from Study
  Country: US (occurrence: US)
  Receive Date: 20230224
  Receipt Date: 20230224
  Transmission Date: 20230417
  Serious: Yes (Hospitalization, Other)
  Sender: FDA-Public Use
  Company Number: US-Indoco-000385

PATIENT
  Age: 17 Year
  Sex: Male
  Weight: 69 kg

DRUGS (2)
  1. APIXABAN [Suspect]
     Active Substance: APIXABAN
     Indication: Thrombosis prophylaxis
     Dosage: ENTERALLY
     Route: 048
  2. ASPIRIN [Concomitant]
     Active Substance: ASPIRIN
     Indication: Thrombosis

REACTIONS (8)
  - Leukopenia [Unknown]
  - Epistaxis [Unknown]
  - Haematuria [Unknown]
  - Haemorrhoidal haemorrhage [Unknown]
  - Graft thrombosis [Unknown]
  - Haemorrhage [Unknown]
  - Product dose omission issue [Unknown]
  - Treatment noncompliance [Unknown]
